FAERS Safety Report 16882950 (Version 1)
Quarter: 2019Q4

REPORT INFORMATION
  Report Type: Spontaneous
  Country: US (occurrence: US)
  Receive Date: 20191004
  Receipt Date: 20191004
  Transmission Date: 20200122
  Serious: Yes (Other)
  Sender: FDA-Public Use
  Company Number: US-CIPLA LTD.-2019US06644

PATIENT

DRUGS (10)
  1. ESCITALOPRAM [Suspect]
     Active Substance: ESCITALOPRAM OXALATE
     Indication: ANXIETY
  2. ESCITALOPRAM [Suspect]
     Active Substance: ESCITALOPRAM OXALATE
     Indication: DEPRESSION
     Dosage: UNK
     Route: 065
  3. CLONAZEPAM. [Suspect]
     Active Substance: CLONAZEPAM
     Indication: ANXIETY
  4. CLONAZEPAM. [Suspect]
     Active Substance: CLONAZEPAM
     Indication: INSOMNIA
  5. ESCITALOPRAM [Suspect]
     Active Substance: ESCITALOPRAM OXALATE
     Indication: INSOMNIA
  6. OLANZAPINE. [Suspect]
     Active Substance: OLANZAPINE
     Indication: HUNTINGTON^S DISEASE
     Dosage: UNK
     Route: 065
  7. TETRABENAZINE. [Concomitant]
     Active Substance: TETRABENAZINE
     Indication: CHOREA
     Dosage: UNK
     Route: 065
  8. TETRABENAZINE. [Concomitant]
     Active Substance: TETRABENAZINE
     Dosage: 12.5 MILLIGRAM, TID
     Route: 065
  9. PROPRANOLOL [Concomitant]
     Active Substance: PROPRANOLOL HYDROCHLORIDE
     Indication: CHOREA
     Dosage: UNK
     Route: 065
  10. CLONAZEPAM. [Suspect]
     Active Substance: CLONAZEPAM
     Indication: DEPRESSION
     Dosage: UNK
     Route: 065

REACTIONS (5)
  - Drug ineffective [Unknown]
  - Drug intolerance [Unknown]
  - Irritability [Unknown]
  - Akathisia [Unknown]
  - Affect lability [Unknown]
